FAERS Safety Report 7534090-4 (Version None)
Quarter: 2011Q2

REPORT INFORMATION
  Report Type: 
  Country: None (occurrence: None)
  Receive Date: 20110608
  Receipt Date: 20060825
  Transmission Date: 20111010
  Serious: Yes (Other)
  Sender: FDA-Public Use
  Company Number: PHMT2006CA01654

PATIENT
  Sex: Female

DRUGS (4)
  1. SANDOSTATIN LAR [Suspect]
     Indication: CARCINOID SYNDROME
     Dosage: 20 MG,EVERY WEEKS
     Dates: start: 20040826
  2. VITAMIN B-12 [Concomitant]
  3. SYNTHROID [Concomitant]
  4. DIAMICRON [Concomitant]

REACTIONS (3)
  - ALOPECIA [None]
  - URINARY TRACT INFECTION [None]
  - ABDOMINAL PAIN LOWER [None]
